FAERS Safety Report 6054712-7 (Version None)
Quarter: 2009Q1

REPORT INFORMATION
  Report Type: 
  Country: None (occurrence: None)
  Receive Date: 20090128
  Receipt Date: 20090123
  Transmission Date: 20090719
  Serious: Yes (Hospitalization, Other)
  Sender: FDA-Public Use
  Company Number: AT-BRISTOL-MYERS SQUIBB COMPANY-14101067

PATIENT
  Age: 70 Year

DRUGS (10)
  1. CETUXIMAB [Suspect]
     Indication: COLON CANCER
     Dosage: 5MG/ML
     Route: 042
     Dates: start: 20071002
  2. OXALIPLATIN [Suspect]
     Indication: COLON CANCER
     Route: 042
     Dates: start: 20071002
  3. FLUOROURACIL [Suspect]
     Indication: COLON CANCER
     Route: 042
     Dates: start: 20071002
  4. FOLINIC ACID [Suspect]
     Indication: COLON CANCER
     Route: 042
     Dates: start: 20071002
  5. PIPERACILLIN SODIUM [Concomitant]
  6. CIPROFLOXACIN HCL [Concomitant]
     Route: 042
  7. ENOXAPARIN SODIUM [Concomitant]
     Route: 058
  8. ACETYLSALICYLIC ACID [Concomitant]
  9. PENTOXIFYLLINE [Concomitant]
  10. PANTOPRAZOLE SODIUM [Concomitant]
     Route: 042

REACTIONS (3)
  - CHOLECYSTITIS [None]
  - DIARRHOEA [None]
  - PNEUMONIA [None]
